FAERS Safety Report 5647789-1 (Version None)
Quarter: 2008Q1

REPORT INFORMATION
  Report Type: 
  Country: None (occurrence: None)
  Receive Date: 20080303
  Receipt Date: 20080220
  Transmission Date: 20080703
  Serious: Yes (Other)
  Sender: FDA-Public Use
  Company Number: GB-PFIZER INC-2008016817

PATIENT
  Age: 36 Year
  Sex: Male

DRUGS (2)
  1. CHANTIX [Suspect]
     Indication: SMOKING CESSATION THERAPY
     Route: 048
  2. LANSOPRAZOLE [Concomitant]
     Route: 048

REACTIONS (3)
  - INAPPROPRIATE AFFECT [None]
  - LACRIMATION INCREASED [None]
  - VISUAL DISTURBANCE [None]
